FAERS Safety Report 25614111 (Version 1)
Quarter: 2025Q3

REPORT INFORMATION
  Report Type: Report from Study
  Country: US (occurrence: US)
  Receive Date: 20250728
  Receipt Date: 20250728
  Transmission Date: 20251021
  Serious: Yes (Other)
  Sender: MALLINCKRODT
  Company Number: US-MALLINCKRODT-MNK202504475

PATIENT
  Age: 50 Year
  Sex: Female
  Weight: 230 kg

DRUGS (1)
  1. CORTICOTROPIN [Suspect]
     Active Substance: CORTICOTROPIN
     Indication: Orbital myositis
     Dates: start: 20250702, end: 20250714

REACTIONS (9)
  - Oropharyngeal blistering [Unknown]
  - Feeling jittery [Unknown]
  - Dry mouth [Unknown]
  - Tremor [Unknown]
  - Dysstasia [Unknown]
  - Gait disturbance [Unknown]
  - Hypersensitivity [Unknown]
  - Peripheral swelling [Unknown]
  - Hypertension [Unknown]

NARRATIVE: CASE EVENT DATE: 20250701
